FAERS Safety Report 4380424-1 (Version None)
Quarter: 2004Q2

REPORT INFORMATION
  Report Type: 
  Country: None (occurrence: None)
  Receive Date: 20040614
  Receipt Date: 20040601
  Transmission Date: 20050107
  Serious: Yes (Disabling)
  Sender: FDA-Public Use
  Company Number: 2004216270JP

PATIENT
  Age: 8 Year
  Sex: Male

DRUGS (1)
  1. GENOTROPIN [Suspect]
     Indication: HYPOPITUITARISM
     Dosage: 0.5 MG, QD, SUBCUTANEOUS
     Route: 058
     Dates: start: 20020318

REACTIONS (2)
  - FRACTURE [None]
  - ROAD TRAFFIC ACCIDENT [None]
